FAERS Safety Report 4320200-9 (Version None)
Quarter: 2004Q1

REPORT INFORMATION
  Report Type: 
  Country: None (occurrence: None)
  Receive Date: 20040317
  Receipt Date: 20040304
  Transmission Date: 20041129
  Serious: Yes (Other)
  Sender: FDA-Public Use
  Company Number: 2003-BP-06779BP(3)

PATIENT
  Age: 84 Year
  Sex: Male

DRUGS (7)
  1. MICARDIS [Suspect]
     Dosage: PO
     Route: 048
     Dates: start: 20030312
  2. RAMIPRIL [Suspect]
     Dosage: PO
     Route: 048
     Dates: start: 20030312
  3. ASPIRIN [Concomitant]
  4. PRAVASTATIN [Concomitant]
  5. FINASTERIDE (FINASTERIDE) (NR) [Concomitant]
  6. LANSOPRAZOLE (NR) [Concomitant]
  7. ATENOLOL (ATENOLOL) (NR) [Concomitant]

REACTIONS (5)
  - BLOOD POTASSIUM INCREASED [None]
  - HYPERKERATOSIS [None]
  - LICHEN PLANUS [None]
  - SKIN HYPERTROPHY [None]
  - ULCER [None]
